FAERS Safety Report 24674833 (Version 2)
Quarter: 2024Q4

REPORT INFORMATION
  Report Type: Spontaneous
  Country: JP (occurrence: JP)
  Receive Date: 20241128
  Receipt Date: 20241223
  Transmission Date: 20250115
  Serious: Yes (Other)
  Sender: ALEXION PHARMACEUTICALS
  Company Number: JP-ASTRAZENECA-240129485_032320_P_1

PATIENT

DRUGS (6)
  1. SAPHNELO [Suspect]
     Active Substance: ANIFROLUMAB-FNIA
     Indication: Systemic lupus erythematosus
     Dosage: DOSE UNKNOWN
  2. SAPHNELO [Suspect]
     Active Substance: ANIFROLUMAB-FNIA
     Dosage: DOSE UNKNOWN
     Route: 041
  3. SAPHNELO [Suspect]
     Active Substance: ANIFROLUMAB-FNIA
     Dosage: DOSE UNKNOWN
  4. SAPHNELO [Suspect]
     Active Substance: ANIFROLUMAB-FNIA
     Dosage: DOSE UNKNOWN
     Route: 041
  5. PREDNISOLONE [Concomitant]
     Active Substance: PREDNISOLONE
     Dosage: 10 MG/D OR MORE
     Route: 065
  6. PREDNISOLONE [Concomitant]
     Active Substance: PREDNISOLONE
     Dosage: 10 MG/D OR MORE
     Route: 065

REACTIONS (1)
  - Nephrotic syndrome [Unknown]
